FAERS Safety Report 8727866 (Version 4)
Quarter: 2012Q4

REPORT INFORMATION
  Report Type: Report from Study
  Country: JP (occurrence: JP)
  Receive Date: 20120816
  Receipt Date: 20121121
  Transmission Date: 20130627
  Serious: Yes (Hospitalization)
  Sender: FDA-Public Use
  Company Number: JP-JNJFOC-20120806264

PATIENT
  Age: 81 Year
  Sex: Female
  Weight: 37 kg

DRUGS (9)
  1. STELARA [Suspect]
     Indication: PSORIATIC ARTHROPATHY
     Route: 058
     Dates: start: 20120424
  2. STELARA [Suspect]
     Indication: PSORIATIC ARTHROPATHY
     Route: 058
     Dates: start: 20120523
  3. ANTEBATE [Concomitant]
     Indication: PSORIATIC ARTHROPATHY
     Route: 061
     Dates: end: 20120626
  4. ETRETINATE [Concomitant]
     Indication: PSORIATIC ARTHROPATHY
  5. LOXONIN [Concomitant]
     Indication: PSORIATIC ARTHROPATHY
     Route: 048
     Dates: end: 20120724
  6. OXAROL [Concomitant]
     Indication: PSORIATIC ARTHROPATHY
     Route: 061
     Dates: end: 20120626
  7. ALESION [Concomitant]
     Indication: PSORIATIC ARTHROPATHY
     Route: 048
     Dates: end: 20120605
  8. MUCOSTA [Concomitant]
     Indication: PROPHYLAXIS
     Route: 048
     Dates: end: 20120714
  9. ANTEBATE [Concomitant]
     Indication: PSORIATIC ARTHROPATHY
     Route: 061
     Dates: end: 20120625

REACTIONS (2)
  - Arthralgia [Recovered/Resolved]
  - Inflammation [Recovered/Resolved]
